FAERS Safety Report 12442118 (Version 1)
Quarter: 2016Q2

REPORT INFORMATION
  Report Type: Spontaneous
  Country: US (occurrence: None)
  Receive Date: 20160606
  Receipt Date: 20160606
  Transmission Date: 20160815
  Serious: Yes (Hospitalization)
  Sender: FDA-Public Use
  Company Number: None

PATIENT
  Age: 67 Year
  Sex: Male
  Weight: 71.6 kg

DRUGS (2)
  1. MORPHINE [Suspect]
     Active Substance: MORPHINE
     Indication: PAIN
     Route: 048
     Dates: start: 20160322, end: 20160326
  2. MORPHINE [Suspect]
     Active Substance: MORPHINE
     Indication: PAIN
     Route: 048
     Dates: start: 20160322, end: 20160326

REACTIONS (11)
  - Mental status changes [None]
  - Constipation [None]
  - Urinary retention [None]
  - Confabulation [None]
  - Nuclear magnetic resonance imaging brain abnormal [None]
  - Agitation [None]
  - Catheter site injury [None]
  - Haematuria [None]
  - Confusional state [None]
  - Anxiety [None]
  - Rheumatoid arthritis [None]

NARRATIVE: CASE EVENT DATE: 20160326
